FAERS Safety Report 4655242-7 (Version None)
Quarter: 2005Q2

REPORT INFORMATION
  Report Type: 
  Country: None (occurrence: None)
  Receive Date: 20050506
  Receipt Date: 20050430
  Transmission Date: 20051028
  Serious: Yes (Hospitalization)
  Sender: FDA-Public Use
  Company Number: GB-GLAXOSMITHKLINE-B0379755A

PATIENT
  Age: 85 Year
  Sex: Male

DRUGS (12)
  1. TRIMETHOPRIM [Suspect]
     Indication: URINARY TRACT INFECTION
     Dosage: 200MG TWICE PER DAY
     Route: 048
     Dates: start: 20050301, end: 20050301
  2. CO-AMOXICLAV [Suspect]
     Indication: URINARY TRACT INFECTION
     Dosage: 375MG THREE TIMES PER DAY
     Route: 048
     Dates: start: 20050301, end: 20050301
  3. WARFARIN [Concomitant]
     Indication: ATRIAL FIBRILLATION
     Dosage: 3MG PER DAY
     Route: 048
  4. NEBIVOLOL [Concomitant]
     Dosage: 5MG PER DAY
     Route: 048
  5. ASPIRIN [Concomitant]
     Dosage: 75MG PER DAY
     Route: 048
     Dates: start: 20050411
  6. SODIUM CARBONATE [Concomitant]
     Dosage: 2.4G THREE TIMES PER DAY
     Route: 048
     Dates: start: 20050411
  7. BUMETANIDE [Concomitant]
     Dosage: 1MG PER DAY
     Route: 048
     Dates: start: 20050411
  8. CO-DYDRAMOL [Concomitant]
     Route: 065
  9. SEVELAMER [Concomitant]
     Dosage: 800MG THREE TIMES PER DAY
     Route: 065
  10. OXYBUTYNIN [Concomitant]
     Dosage: 2.5MG TWICE PER DAY
     Route: 065
  11. SENNA [Concomitant]
     Route: 065
  12. NEORECORMON [Concomitant]
     Dosage: 3000UNIT PER DAY
     Route: 065

REACTIONS (3)
  - HAEMATOCHEZIA [None]
  - MALAISE [None]
  - MELAENA [None]
